FAERS Safety Report 5825016-X (Version None)
Quarter: 2008Q3

REPORT INFORMATION
  Report Type: 
  Country: None (occurrence: None)
  Receive Date: 20080728
  Receipt Date: 20080715
  Transmission Date: 20090109
  Serious: Yes (Hospitalization, Other)
  Sender: FDA-Public Use
  Company Number: US-PFIZER INC-2008058586

PATIENT
  Sex: Male

DRUGS (15)
  1. PREDNISONE [Suspect]
     Dosage: DAILY DOSE:5MG
  2. ETANERCEPT [Suspect]
     Indication: PSORIATIC ARTHROPATHY
     Dosage: DAILY DOSE:50MG-FREQ:FREQUENCY: 1 IN 1 WEEKS
     Route: 058
     Dates: start: 20041202, end: 20080412
  3. ETANERCEPT [Suspect]
     Indication: RHEUMATOID ARTHRITIS
  4. COMBIVENT [Concomitant]
  5. BUMETANIDE [Concomitant]
  6. IPRATROPIUM BROMIDE [Concomitant]
  7. FLUNISOLIDE [Concomitant]
  8. LOVASTATIN [Concomitant]
  9. LISINOPRIL [Concomitant]
  10. RANITIDINE HCL [Concomitant]
  11. FUROSEMIDE [Concomitant]
  12. CALCIUM WITH VITAMIN D [Concomitant]
  13. FOLIC ACID [Concomitant]
  14. MAGNESIUM SULFATE [Concomitant]
  15. OXYGEN [Concomitant]

REACTIONS (5)
  - ALCOHOL WITHDRAWAL SYNDROME [None]
  - ALPHA HAEMOLYTIC STREPTOCOCCAL INFECTION [None]
  - CHRONIC OBSTRUCTIVE PULMONARY DISEASE [None]
  - HAEMOGLOBIN DECREASED [None]
  - SEPSIS [None]
